FAERS Safety Report 9033939 (Version 1)
Quarter: 2013Q1

REPORT INFORMATION
  Report Type: Spontaneous
  Country: US (occurrence: US)
  Receive Date: 20130128
  Receipt Date: 20130128
  Transmission Date: 20140127
  Serious: Yes (Other)
  Sender: FDA-Public Use
  Company Number: US-AMGEN-USASP2012067108

PATIENT
  Age: 64 Year
  Sex: Female

DRUGS (13)
  1. ENBREL [Suspect]
     Indication: PRODUCT USED FOR UNKNOWN INDICATION
     Dosage: 50 MG, QWK
     Route: 058
  2. ZANAFLEX [Concomitant]
     Dosage: 4 MG, UNK
  3. AMBIEN [Concomitant]
     Dosage: 5 MG, UNK
  4. CELEBREX [Concomitant]
     Dosage: 200 MG, UNK
  5. ATENOLOL [Concomitant]
     Dosage: 50 MG, UNK
  6. PLAQUENIL                          /00072602/ [Concomitant]
     Dosage: 200 MG, UNK
  7. ESTROPIPATE [Concomitant]
     Dosage: 1.5 MG, UNK
  8. FISH OIL [Concomitant]
     Dosage: 1400 MG, UNK
  9. CALTRATE + D                       /01204201/ [Concomitant]
     Dosage: 600 UNK, UNK
  10. PREMARIN [Concomitant]
     Dosage: UNK
  11. PERCOCET                           /00867901/ [Concomitant]
     Dosage: 10-650 MG
  12. MULTIVITAMINS, PLAIN [Concomitant]
     Dosage: UNK
  13. HYDROCODONE/APAP [Concomitant]
     Dosage: 5-500

REACTIONS (1)
  - Knee arthroplasty [Unknown]
